FAERS Safety Report 4864356-8 (Version None)
Quarter: 2005Q4

REPORT INFORMATION
  Report Type: 
  Country: None (occurrence: None)
  Receive Date: 20051222
  Receipt Date: 20050926
  Transmission Date: 20060501
  Serious: Yes (Hospitalization, Disabling)
  Sender: FDA-Public Use
  Company Number: US-MERCK-0509USA03982

PATIENT
  Age: 45 Year
  Sex: Male
  Weight: 100 kg

DRUGS (6)
  1. VIOXX [Suspect]
     Indication: ARTHRITIS
     Route: 048
     Dates: start: 20010827, end: 20040918
  2. VIOXX [Suspect]
     Indication: TENDONITIS
     Route: 048
     Dates: start: 20010827, end: 20040918
  3. PROTONIX [Concomitant]
     Route: 065
  4. LIPITOR [Concomitant]
     Route: 065
  5. TOPROL-XL [Concomitant]
     Route: 065
  6. AMBIEN [Concomitant]
     Route: 065

REACTIONS (3)
  - ARTERIOSCLEROSIS [None]
  - MYOCARDIAL INFARCTION [None]
  - RENAL COLIC [None]
